FAERS Safety Report 6301966-5 (Version None)
Quarter: 2009Q3

REPORT INFORMATION
  Report Type: 
  Country: None (occurrence: None)
  Receive Date: 20090807
  Receipt Date: 20090729
  Transmission Date: 20100115
  Serious: Yes (Hospitalization, Other)
  Sender: FDA-Public Use
  Company Number: PHHY2009BR31842

PATIENT
  Age: 55 Year
  Sex: Male
  Weight: 85 kg

DRUGS (4)
  1. TEGRETOL [Suspect]
     Indication: SYNCOPE
     Dosage: 400 MG, BID
     Route: 048
     Dates: start: 19890101
  2. GARDENAL [Concomitant]
     Indication: SYNCOPE
     Dosage: 100 MG, QD
     Route: 048
     Dates: start: 19890101
  3. RIVOTRIL [Concomitant]
     Indication: SYNCOPE
     Dosage: 1 MG, QD
     Route: 048
     Dates: start: 19890101
  4. CAPOTEN [Concomitant]
     Indication: BLOOD PRESSURE
     Dosage: 50 MG DAILY
     Route: 048
     Dates: start: 19990101

REACTIONS (12)
  - BURNING SENSATION [None]
  - CHEST PAIN [None]
  - DEPRESSION [None]
  - DIABETES MELLITUS [None]
  - DRY SKIN [None]
  - EYE INJURY [None]
  - EYE PENETRATION [None]
  - LIBIDO DECREASED [None]
  - PARAESTHESIA [None]
  - PETIT MAL EPILEPSY [None]
  - ROAD TRAFFIC ACCIDENT [None]
  - SOMNOLENCE [None]
